FAERS Safety Report 25778407 (Version 2)
Quarter: 2025Q3

REPORT INFORMATION
  Report Type: Spontaneous
  Country: EU (occurrence: EU)
  Receive Date: 20250909
  Receipt Date: 20250922
  Transmission Date: 20251020
  Serious: Yes (Hospitalization, Other)
  Sender: AUROBINDO
  Company Number: EU-MLMSERVICE-20250818-PI616054-00270-1

PATIENT
  Age: 63 Year
  Sex: Female
  Weight: 154 kg

DRUGS (1)
  1. PREDNISOLONE [Suspect]
     Active Substance: PREDNISOLONE
     Indication: Chronic cutaneous lupus erythematosus
     Dosage: 20 MILLIGRAM, ONCE A DAY
     Route: 048

REACTIONS (3)
  - Pericarditis constrictive [Recovered/Resolved]
  - Aortic pseudoaneurysm [Recovered/Resolved]
  - Salmonellosis [Recovered/Resolved]
